FAERS Safety Report 8978074 (Version 2)
Quarter: 2013Q1

REPORT INFORMATION
  Report Type: Spontaneous
  Country: DE (occurrence: DE)
  Receive Date: 20121221
  Receipt Date: 20130116
  Transmission Date: 20140127
  Serious: Yes (Other)
  Sender: FDA-Public Use
  Company Number: DE-JNJFOC-20121205352

PATIENT
  Age: 30 Year
  Sex: Male
  Weight: 97 kg

DRUGS (3)
  1. STELARA [Suspect]
     Indication: PSORIASIS
     Route: 058
  2. PARACETAMOL [Concomitant]
     Indication: ARTHRALGIA
     Route: 048
     Dates: start: 20121205, end: 20121211
  3. IBUPROFEN [Concomitant]
     Indication: ARTHRALGIA
     Route: 048
     Dates: start: 20121205, end: 20121211

REACTIONS (2)
  - Antiphospholipid syndrome [Unknown]
  - Thrombophlebitis [Not Recovered/Not Resolved]
